FAERS Safety Report 5625043-1 (Version None)
Quarter: 2008Q1

REPORT INFORMATION
  Report Type: 
  Country: None (occurrence: None)
  Receive Date: 20080213
  Receipt Date: 20080201
  Transmission Date: 20080703
  Serious: Yes (Hospitalization, Other)
  Sender: FDA-Public Use
  Company Number: CA-ELI_LILLY_AND_COMPANY-CA200711000125

PATIENT
  Age: 72 Year
  Sex: Female

DRUGS (1)
  1. FORTEO [Suspect]
     Indication: OSTEOPOROSIS
     Dosage: 20 UG, DAILY (1/D)
     Route: 058
     Dates: start: 20070418, end: 20080101

REACTIONS (6)
  - HOSPITALISATION [None]
  - LUNG CARCINOMA CELL TYPE UNSPECIFIED STAGE III [None]
  - MASS [None]
  - NAUSEA [None]
  - RENAL DISORDER [None]
  - THROAT LESION [None]
